FAERS Safety Report 15636596 (Version 1)
Quarter: 2018Q4

REPORT INFORMATION
  Report Type: Spontaneous
  Country: IT (occurrence: IT)
  Receive Date: 20181120
  Receipt Date: 20181120
  Transmission Date: 20190205
  Serious: Yes (Hospitalization)
  Sender: FDA-Public Use
  Company Number: IT-BIOGEN-2018BI00660085

PATIENT
  Age: 2 Month
  Sex: Male
  Weight: 6 kg

DRUGS (1)
  1. SPINRAZA [Suspect]
     Active Substance: NUSINERSEN
     Indication: SPINAL MUSCULAR ATROPHY
     Dosage: 12 MILLIGRAM CYCLICAL
     Route: 065
     Dates: start: 20180912, end: 20180912

REACTIONS (1)
  - Neonatal hypoxia [Recovered/Resolved with Sequelae]

NARRATIVE: CASE EVENT DATE: 20180912
